FAERS Safety Report 7943607-7 (Version None)
Quarter: 2011Q4

REPORT INFORMATION
  Report Type: 
  Country: None (occurrence: None)
  Receive Date: 20111128
  Receipt Date: 20111118
  Transmission Date: 20120403
  Serious: Yes (Other)
  Sender: FDA-Public Use
  Company Number: JP-JNJFOC-20110403776

PATIENT
  Sex: Male
  Weight: 56 kg

DRUGS (23)
  1. FENTANYL-100 [Suspect]
     Route: 062
     Dates: start: 20101220, end: 20101228
  2. MORPHINE HCL ELIXIR [Concomitant]
     Route: 048
     Dates: start: 20101206
  3. MORPHINE HCL ELIXIR [Concomitant]
     Route: 048
     Dates: start: 20101122
  4. GOREISAN [Concomitant]
     Indication: PAIN
     Route: 048
     Dates: end: 20110120
  5. MORPHINE HCL ELIXIR [Concomitant]
     Route: 048
     Dates: start: 20101115
  6. CARBOCAIN [Concomitant]
     Indication: PAIN
     Route: 065
     Dates: start: 20101111, end: 20101220
  7. FENTANYL-100 [Suspect]
     Indication: PAIN
     Route: 062
     Dates: start: 20101108, end: 20101115
  8. FENTANYL-100 [Suspect]
     Route: 062
     Dates: start: 20110224, end: 20110310
  9. GABAPENTIN [Concomitant]
     Indication: PAIN
     Route: 048
     Dates: end: 20101206
  10. MORPHINE HCL ELIXIR [Concomitant]
     Route: 048
     Dates: start: 20101129
  11. FENTANYL-100 [Suspect]
     Route: 062
     Dates: start: 20101228, end: 20110224
  12. MORPHINE HCL ELIXIR [Concomitant]
     Route: 048
     Dates: start: 20101108
  13. PROCHLORPERAZINE [Concomitant]
     Route: 048
     Dates: end: 20110127
  14. PURSENNID [Concomitant]
     Route: 048
  15. NEUROTROPIN [Concomitant]
     Indication: PAIN
     Route: 048
  16. LYRICA [Concomitant]
     Route: 048
     Dates: start: 20101206, end: 20101228
  17. MAGMITT [Concomitant]
     Route: 048
  18. NORTRIPTYLINE HCL [Concomitant]
     Indication: PAIN
     Route: 048
  19. CLONAZEPAM [Concomitant]
     Indication: PAIN
     Route: 048
     Dates: end: 20101206
  20. METHYCOBAL [Concomitant]
     Indication: PAIN
     Route: 048
     Dates: end: 20101206
  21. FENTANYL-100 [Suspect]
     Route: 062
     Dates: start: 20101115, end: 20101220
  22. LYRICA [Concomitant]
     Indication: PAIN
     Route: 048
     Dates: start: 20101228
  23. DEXAMETHASONE SODIUM PHOSPHATE [Concomitant]
     Indication: PAIN
     Route: 065

REACTIONS (3)
  - SOMNOLENCE [None]
  - CONSTIPATION [None]
  - CACHEXIA [None]
